FAERS Safety Report 12289363 (Version 1)
Quarter: 2016Q2

REPORT INFORMATION
  Report Type: Spontaneous
  Country: US (occurrence: None)
  Receive Date: 20160420
  Receipt Date: 20160420
  Transmission Date: 20160815
  Serious: No
  Sender: FDA-Public Use
  Company Number: None

PATIENT
  Age: 41 Year
  Sex: Female

DRUGS (1)
  1. COPAXONE [Suspect]
     Active Substance: GLATIRAMER ACETATE
     Indication: MULTIPLE SCLEROSIS
     Dosage: 40MG/ML 3 TIMES A WEEK SUBCUTANEOUSLY
     Route: 058
     Dates: start: 20141008

REACTIONS (3)
  - Urinary tract infection [None]
  - Alopecia [None]
  - Fungal infection [None]

NARRATIVE: CASE EVENT DATE: 20151201
